FAERS Safety Report 8868940 (Version 2)
Quarter: 2013Q1

REPORT INFORMATION
  Report Type: Spontaneous
  Country: US (occurrence: US)
  Receive Date: 20121027
  Receipt Date: 20130307
  Transmission Date: 20140127
  Serious: Yes (Hospitalization, Other)
  Sender: FDA-Public Use
  Company Number: US-009507513-1209USA005273

PATIENT
  Sex: Male
  Weight: 168 kg

DRUGS (3)
  1. RIBAVIRIN [Suspect]
     Indication: HEPATITIS C
     Dosage: UNK
     Dates: start: 20120403, end: 20121004
  2. VICTRELIS [Suspect]
     Indication: HEPATITIS C
     Dosage: UNK
     Dates: start: 20120505, end: 20121004
  3. PEGASYS [Suspect]
     Indication: HEPATITIS C
     Dosage: UNK
     Dates: start: 20120403, end: 20121004

REACTIONS (14)
  - Nephrolithiasis [Unknown]
  - Neutrophil count decreased [Unknown]
  - Fatigue [Unknown]
  - Balance disorder [Unknown]
  - Myalgia [Unknown]
  - Hypotonia [Unknown]
  - Weight decreased [Unknown]
  - Thrombocytopenia [Unknown]
  - Neutropenia [Unknown]
  - Leukopenia [Unknown]
  - Nail disorder [Unknown]
  - Anaemia [Unknown]
  - Anaemia [Unknown]
  - Drug ineffective [Unknown]
